FAERS Safety Report 4773535-X (Version None)
Quarter: 2005Q3

REPORT INFORMATION
  Report Type: 
  Country: None (occurrence: None)
  Receive Date: 20050920
  Receipt Date: 20040909
  Transmission Date: 20060218
  Serious: No
  Sender: FDA-Public Use
  Company Number: US-BRISTOL-MYERS SQUIBB COMPANY-12698551

PATIENT
  Sex: Female

DRUGS (2)
  1. BUSPIRONE HCL [Suspect]
     Indication: ANXIETY
     Dosage: 15MG TABLET
     Route: 048
     Dates: start: 20031001
  2. PROZAC [Concomitant]

REACTIONS (1)
  - ALOPECIA [None]
